FAERS Safety Report 9303526 (Version 1)
Quarter: 2013Q2

REPORT INFORMATION
  Report Type: Spontaneous
  Country: US (occurrence: US)
  Receive Date: 20130522
  Receipt Date: 20130522
  Transmission Date: 20140414
  Serious: Yes (Other)
  Sender: FDA-Public Use
  Company Number: US-PFIZER INC-2013156873

PATIENT
  Age: 39 Year
  Sex: Female
  Weight: 90.7 kg

DRUGS (2)
  1. LEVOXYL [Suspect]
     Indication: AUTOIMMUNE THYROIDITIS
     Dosage: 50 UG (2 TABLET OF 25 MCG EACH), 2X/DAY
     Route: 048
  2. CYTOMEL [Suspect]
     Indication: AUTOIMMUNE THYROIDITIS
     Dosage: UNK, 2X/DAY (2 TABLETS OF 5MCG EACH IN THE MORNING AND 1 AND A HALF TABLET OF 5 MCG IN THE EVENING)
     Route: 048

REACTIONS (1)
  - Abortion spontaneous [Unknown]
